FAERS Safety Report 9603172 (Version 1)
Quarter: 2013Q4

REPORT INFORMATION
  Report Type: Report from Study
  Country: CA (occurrence: CA)
  Receive Date: 20131007
  Receipt Date: 20131007
  Transmission Date: 20140711
  Serious: Yes (Hospitalization)
  Sender: FDA-Public Use
  Company Number: CA-ROCHE-1282556

PATIENT
  Age: 59 Year
  Sex: Female

DRUGS (9)
  1. TRASTUZUMAB [Suspect]
     Indication: PRODUCT USED FOR UNKNOWN INDICATION
     Dosage: POWDER FOR SOLUTION INTRAVENOUS
     Route: 042
  2. BEVACIZUMAB [Suspect]
     Indication: PRODUCT USED FOR UNKNOWN INDICATION
     Route: 042
  3. CARBOPLATIN [Suspect]
     Indication: PRODUCT USED FOR UNKNOWN INDICATION
     Route: 042
  4. DOCETAXEL [Suspect]
     Indication: PRODUCT USED FOR UNKNOWN INDICATION
     Route: 042
  5. CLONIDINE [Concomitant]
     Route: 065
  6. COZAAR [Concomitant]
     Route: 065
  7. HYZAAR (CANADA) [Concomitant]
     Route: 065
  8. QUININE [Concomitant]
     Route: 065
  9. RIVOTRIL [Concomitant]
     Route: 065

REACTIONS (2)
  - Hepatic steatosis [Recovered/Resolved]
  - Vomiting [Recovered/Resolved]
